FAERS Safety Report 24094878 (Version 1)
Quarter: 2024Q3

REPORT INFORMATION
  Report Type: Spontaneous
  Country: US (occurrence: US)
  Receive Date: 20240716
  Receipt Date: 20240716
  Transmission Date: 20241017
  Serious: No
  Sender: BIOGEN
  Company Number: US-BIOGEN-2024BI01268373

PATIENT
  Sex: Male

DRUGS (2)
  1. VUMERITY [Suspect]
     Active Substance: DIROXIMEL FUMARATE
     Indication: Multiple sclerosis
     Route: 050
     Dates: start: 20240513, end: 20240519
  2. VUMERITY [Suspect]
     Active Substance: DIROXIMEL FUMARATE
     Route: 050
     Dates: start: 20240520, end: 20240526

REACTIONS (2)
  - Ligament rupture [Not Recovered/Not Resolved]
  - Rash [Unknown]

NARRATIVE: CASE EVENT DATE: 20240101
